FAERS Safety Report 7726484-9 (Version None)
Quarter: 2011Q3

REPORT INFORMATION
  Report Type: 
  Country: None (occurrence: None)
  Receive Date: 20110902
  Receipt Date: 20110822
  Transmission Date: 20111222
  Serious: No
  Sender: FDA-Public Use
  Company Number: PHHY2011US56289

PATIENT
  Sex: Female
  Weight: 84.354 kg

DRUGS (4)
  1. AMBIEN CR [Concomitant]
     Indication: INSOMNIA
     Dosage: 12.5 MG, UNK
     Dates: start: 20110111
  2. GILENYA [Suspect]
     Indication: RELAPSING-REMITTING MULTIPLE SCLEROSIS
     Dosage: 0.5 MG, QD
     Route: 048
     Dates: start: 20110602
  3. WELLBUTRIN [Concomitant]
     Indication: DEPRESSION
     Dosage: 1 TAB 9 AM
     Route: 048
     Dates: start: 20110111
  4. KLONOPIN [Concomitant]
     Indication: TREMOR
     Dosage: 1 MG/DAILY
     Dates: start: 20091109

REACTIONS (4)
  - BLOOD PRESSURE DECREASED [None]
  - HEADACHE [None]
  - CHEST PAIN [None]
  - ABDOMINAL PAIN UPPER [None]
